FAERS Safety Report 5803976-0 (Version None)
Quarter: 2008Q3

REPORT INFORMATION
  Report Type: 
  Country: None (occurrence: None)
  Receive Date: 20080703
  Receipt Date: 20080623
  Transmission Date: 20090109
  Serious: Yes (Death)
  Sender: FDA-Public Use
  Company Number: 2008AL007508

PATIENT
  Age: 71 Year
  Sex: Male

DRUGS (1)
  1. DIGOXIN [Suspect]
     Indication: CARDIAC FAILURE CONGESTIVE
     Dosage: 0.125MG, DAILY, PO
     Route: 048
     Dates: start: 19980101, end: 20080524

REACTIONS (4)
  - DIZZINESS [None]
  - MOANING [None]
  - RENAL FAILURE CHRONIC [None]
  - SOMNOLENCE [None]
